FAERS Safety Report 9606761 (Version 1)
Quarter: 2013Q4

REPORT INFORMATION
  Report Type: Spontaneous
  Country: US (occurrence: US)
  Receive Date: 20131008
  Receipt Date: 20131008
  Transmission Date: 20140711
  Serious: No
  Sender: FDA-Public Use
  Company Number: US-AMGEN-USASP2013062934

PATIENT
  Age: 46 Year
  Sex: Female

DRUGS (5)
  1. PROLIA [Suspect]
     Indication: OSTEOPOROSIS POSTMENOPAUSAL
     Dosage: 60 MG, UNK
     Route: 065
     Dates: start: 20130903
  2. CALCIUM [Concomitant]
  3. VITAMIN D                          /00107901/ [Concomitant]
     Dosage: 5000 UNIT, QD
  4. MULTIVITAMIN                       /00097801/ [Concomitant]
  5. LIDODERM [Concomitant]
     Indication: PAIN
     Dosage: UNK UNK, AS NECESSARY

REACTIONS (13)
  - Paraesthesia [Unknown]
  - Back pain [Not Recovered/Not Resolved]
  - Arthralgia [Not Recovered/Not Resolved]
  - Diarrhoea [Unknown]
  - Abdominal discomfort [Not Recovered/Not Resolved]
  - Abdominal pain upper [Unknown]
  - Abdominal distension [Unknown]
  - Chills [Unknown]
  - Feeling hot [Unknown]
  - Feeling cold [Unknown]
  - Cold sweat [Unknown]
  - Asthenia [Unknown]
  - Influenza like illness [Unknown]
